FAERS Safety Report 9196465 (Version 1)
Quarter: 2013Q1

REPORT INFORMATION
  Report Type: Spontaneous
  Country: US (occurrence: None)
  Receive Date: 20120709
  Receipt Date: 20120709
  Transmission Date: 20140127
  Serious: No
  Sender: FDA-Public Use
  Company Number: 2012HGS-003553

PATIENT
  Age: 54 Year
  Sex: Female
  Weight: 70.31 kg

DRUGS (3)
  1. BENLYSTA [Suspect]
     Indication: SYSTEMIC LUPUS ERYTHEMATOSUS
     Dates: start: 20120424
  2. PLAQUENIL [Concomitant]
  3. TYLENOL [Concomitant]

REACTIONS (1)
  - Blood pressure decreased [None]
